FAERS Safety Report 10420545 (Version 1)
Quarter: 2014Q3

REPORT INFORMATION
  Report Type: Spontaneous
  Country: US (occurrence: None)
  Receive Date: 20140714
  Receipt Date: 20140714
  Transmission Date: 20150326
  Serious: No
  Sender: FDA-Public Use
  Company Number: 2014US003365

PATIENT
  Age: 63 Year
  Sex: Male

DRUGS (9)
  1. LEVOFLOXACIN [Concomitant]
     Active Substance: LEVOFLOXACIN
  2. CYTARABINE. [Concomitant]
     Active Substance: CYTARABINE
  3. ALLOPURINOL. [Concomitant]
     Active Substance: ALLOPURINOL
  4. METHOTREXATE [Concomitant]
     Active Substance: METHOTREXATE
  5. ICLUSIG [Suspect]
     Active Substance: PONATINIB
     Indication: CHRONIC MYELOID LEUKAEMIA
     Route: 048
  6. DEXAMETHASONE. [Concomitant]
     Active Substance: DEXAMETHASONE
  7. VINCRISTINE SULFATE. [Concomitant]
     Active Substance: VINCRISTINE SULFATE
  8. NEULASTA [Concomitant]
     Active Substance: PEGFILGRASTIM
  9. VALTREX [Concomitant]
     Active Substance: VALACYCLOVIR HYDROCHLORIDE

REACTIONS (1)
  - Pyrexia [None]

NARRATIVE: CASE EVENT DATE: 20140603
